FAERS Safety Report 4652683-9 (Version None)
Quarter: 2005Q2

REPORT INFORMATION
  Report Type: 
  Country: None (occurrence: None)
  Receive Date: 20050502
  Receipt Date: 20050418
  Transmission Date: 20051028
  Serious: Yes (Hospitalization)
  Sender: FDA-Public Use
  Company Number: 2005063303

PATIENT
  Age: 56 Year
  Sex: Female
  Weight: 68.0396 kg

DRUGS (4)
  1. FELDENE [Suspect]
     Indication: NERVE COMPRESSION
     Dosage: ORAL
     Route: 048
     Dates: start: 19950101, end: 20050101
  2. BEXTRA [Suspect]
     Indication: PLANTAR FASCIITIS
     Dosage: ORAL
     Route: 048
     Dates: start: 20040101, end: 20040101
  3. RISEDRONATE SODIUM (RISEDRONATE SODIUM) [Concomitant]
  4. SPIRONOLACTONE [Concomitant]

REACTIONS (6)
  - APPENDICITIS PERFORATED [None]
  - DISCOMFORT [None]
  - DRUG INEFFECTIVE [None]
  - INFECTION [None]
  - PLANTAR FASCIITIS [None]
  - PLATELET COUNT DECREASED [None]
